FAERS Safety Report 8324522 (Version 8)
Quarter: 2012Q4

REPORT INFORMATION
  Report Type: Report from Study
  Country: AU (occurrence: AU)
  Receive Date: 20120106
  Receipt Date: 20121119
  Transmission Date: 20130627
  Serious: Yes (Hospitalization)
  Sender: FDA-Public Use
  Company Number: AU-JNJFOC-20111102590

PATIENT
  Age: 67 Year
  Sex: Male
  Weight: 76 kg

DRUGS (26)
  1. ABIRATERONE ACETATE [Suspect]
     Indication: PROSTATE CANCER METASTATIC
     Route: 048
     Dates: start: 20111017, end: 20111113
  2. ABIRATERONE ACETATE [Suspect]
     Indication: PROSTATE CANCER METASTATIC
     Route: 048
     Dates: start: 20111214
  3. ABIRATERONE ACETATE [Suspect]
     Indication: PROSTATE CANCER METASTATIC
     Route: 048
     Dates: start: 20111121
  4. PREDNISOLONE [Suspect]
     Indication: PROSTATE CANCER METASTATIC
     Route: 048
     Dates: start: 20111017
  5. OXYCONTIN [Suspect]
     Indication: PAIN
     Route: 065
     Dates: start: 20120104
  6. CEFTRIAXONE [Concomitant]
     Indication: BACK PAIN
     Route: 065
     Dates: start: 20111102, end: 20111103
  7. PARACETAMOL [Concomitant]
     Indication: BACK PAIN
     Route: 065
     Dates: start: 20111102, end: 20111103
  8. AMPICILLIN [Concomitant]
     Indication: BACK PAIN
     Route: 065
     Dates: start: 20111102, end: 20111103
  9. ONDANSETRON [Concomitant]
     Indication: VOMITING
     Route: 065
     Dates: start: 20111226, end: 20111227
  10. ONDANSETRON [Concomitant]
     Indication: VOMITING
     Route: 065
     Dates: start: 20111222, end: 20111223
  11. ONDANSETRON [Concomitant]
     Indication: VOMITING
     Route: 065
     Dates: start: 20111209, end: 20111209
  12. METOCLOPRAMIDE [Concomitant]
     Indication: VOMITING
     Route: 065
     Dates: start: 20111222, end: 20111223
  13. METOCLOPRAMIDE [Concomitant]
     Indication: VOMITING
     Route: 065
     Dates: start: 20111209, end: 20111212
  14. METOCLOPRAMIDE [Concomitant]
     Indication: VOMITING
     Route: 065
     Dates: start: 20111223, end: 20111227
  15. COLOXYL AND SENNA [Concomitant]
     Indication: CONSTIPATION
     Route: 065
     Dates: start: 20111223, end: 20111227
  16. COLOXYL AND SENNA [Concomitant]
     Indication: CONSTIPATION
     Route: 065
     Dates: start: 20111209, end: 20111212
  17. GLYCERINE [Concomitant]
     Indication: CONSTIPATION
     Route: 065
     Dates: start: 20111210, end: 20111210
  18. PANADOL OSTEO [Concomitant]
     Indication: PAIN
     Route: 065
     Dates: start: 20111222, end: 20111227
  19. ENDONE [Concomitant]
     Indication: PAIN
     Route: 065
     Dates: start: 20111222, end: 20111227
  20. FENTANYL [Concomitant]
     Indication: PAIN
     Route: 065
     Dates: start: 20111224, end: 20111227
  21. FENTANYL [Concomitant]
     Indication: PAIN
     Route: 065
     Dates: start: 20111223, end: 20111223
  22. MOVICOL [Concomitant]
     Indication: CONSTIPATION
     Route: 065
     Dates: start: 20111222, end: 20111222
  23. OMEPRAZOLE [Concomitant]
     Indication: VOMITING
     Route: 065
     Dates: start: 20111223, end: 20111227
  24. OMEPRAZOLE [Concomitant]
     Indication: VOMITING
     Route: 065
     Dates: start: 20111209, end: 20111212
  25. CEPHALEXIN [Concomitant]
     Indication: VOMITING
     Route: 065
     Dates: start: 20111224, end: 20111227
  26. NORMAL SALINE SOLUTION [Concomitant]
     Indication: VOMITING
     Route: 065
     Dates: start: 20111222, end: 20111222

REACTIONS (5)
  - Vomiting [Recovered/Resolved]
  - Hyperkalaemia [Recovered/Resolved]
  - Back pain [Recovered/Resolved]
  - Vomiting [Recovered/Resolved]
  - Vomiting [Recovered/Resolved]
